FAERS Safety Report 25346395 (Version 3)
Quarter: 2025Q2

REPORT INFORMATION
  Report Type: Spontaneous
  Country: US (occurrence: US)
  Receive Date: 20250522
  Receipt Date: 20250606
  Transmission Date: 20250716
  Serious: Yes (Other)
  Sender: KAMADA BIOPHARMACEUTICALS
  Company Number: US-KAMADA LIMITED- 2025-KAM-US000367

PATIENT

DRUGS (6)
  1. KEDRAB [Suspect]
     Active Substance: HUMAN RABIES VIRUS IMMUNE GLOBULIN
     Indication: Rabies immunisation
     Route: 030
     Dates: start: 20250511
  2. KEDRAB [Suspect]
     Active Substance: HUMAN RABIES VIRUS IMMUNE GLOBULIN
     Indication: Prophylaxis
     Dates: start: 20250514
  3. IMOVAX [Suspect]
     Active Substance: RABIES VACCINE\RABIES VIRUS STRAIN PM-1503-3M ANTIGEN (PROPIOLACTONE INACTIVATED)
     Indication: Rabies immunisation
     Route: 030
     Dates: start: 20250511
  4. IMOVAX [Suspect]
     Active Substance: RABIES VACCINE\RABIES VIRUS STRAIN PM-1503-3M ANTIGEN (PROPIOLACTONE INACTIVATED)
     Indication: Prophylaxis
     Dates: start: 20250514
  5. IMOVAX [Suspect]
     Active Substance: RABIES VACCINE\RABIES VIRUS STRAIN PM-1503-3M ANTIGEN (PROPIOLACTONE INACTIVATED)
     Dates: start: 20250517
  6. IMOVAX [Suspect]
     Active Substance: RABIES VACCINE\RABIES VIRUS STRAIN PM-1503-3M ANTIGEN (PROPIOLACTONE INACTIVATED)
     Dates: start: 20250521

REACTIONS (3)
  - Vaccine interaction [Unknown]
  - Product administered at inappropriate site [Unknown]
  - Extra dose administered [Unknown]

NARRATIVE: CASE EVENT DATE: 20250511
